FAERS Safety Report 5851463-6 (Version None)
Quarter: 2008Q3

REPORT INFORMATION
  Report Type: 
  Country: None (occurrence: None)
  Receive Date: 20080820
  Receipt Date: 20080811
  Transmission Date: 20090109
  Serious: Yes (Other)
  Sender: FDA-Public Use
  Company Number: US-JNJFOC-20080504140

PATIENT
  Sex: Female
  Weight: 72.58 kg

DRUGS (10)
  1. TOPAMAX [Suspect]
     Route: 048
  2. TOPAMAX [Suspect]
     Indication: MIGRAINE PROPHYLAXIS
     Dosage: 25 MG IN AM, 50 MG IN PM
     Route: 048
  3. SALAGEN [Concomitant]
     Indication: SJOGREN'S SYNDROME
  4. PROTONIX [Concomitant]
  5. SINGULAIR [Concomitant]
  6. SYMBICORT [Concomitant]
     Indication: ASTHMA
  7. CLONAZEPAM [Concomitant]
  8. IMITREX [Concomitant]
     Indication: MIGRAINE
  9. PROTOPIC [Concomitant]
     Indication: ECZEMA
  10. ALEVE [Concomitant]
     Indication: HEADACHE

REACTIONS (5)
  - ABNORMAL DREAMS [None]
  - CHEST DISCOMFORT [None]
  - DYSPNOEA [None]
  - PALPITATIONS [None]
  - THROAT TIGHTNESS [None]
